FAERS Safety Report 6587947-5 (Version None)
Quarter: 2010Q1

REPORT INFORMATION
  Report Type: 
  Country: None (occurrence: None)
  Receive Date: 20100217
  Receipt Date: 20100217
  Transmission Date: 20100710
  Serious: No
  Sender: FDA-Public Use
  Company Number: None

PATIENT
  Age: 19 Year
  Sex: Male

DRUGS (1)
  1. DOXYCYCLINE HCL [Suspect]
     Dosage: ONCE OR TWICE PER DAY
     Dates: start: 20090301, end: 20090601

REACTIONS (3)
  - CLOSTRIDIUM DIFFICILE COLITIS [None]
  - CROHN'S DISEASE [None]
  - HAEMORRHOIDS [None]
